FAERS Safety Report 25671931 (Version 1)
Quarter: 2025Q3

REPORT INFORMATION
  Report Type: Spontaneous
  Country: US (occurrence: US)
  Receive Date: 20250812
  Receipt Date: 20250812
  Transmission Date: 20251021
  Serious: No
  Sender: PFIZER
  Company Number: US-PFIZER INC-202500160984

PATIENT

DRUGS (6)
  1. MINOXIDIL [Suspect]
     Active Substance: MINOXIDIL
  2. HYDROXYCHLOROQUINE [Concomitant]
     Active Substance: HYDROXYCHLOROQUINE
  3. CYCLOSPORINE [Concomitant]
     Active Substance: CYCLOSPORINE
  4. FINASTERIDE [Concomitant]
     Active Substance: FINASTERIDE
  5. ADDERALL [Concomitant]
     Active Substance: AMPHETAMINE ASPARTATE\AMPHETAMINE SULFATE\DEXTROAMPHETAMINE SACCHARATE\DEXTROAMPHETAMINE SULFATE
  6. CURCUMIN [Concomitant]
     Active Substance: CURCUMIN

REACTIONS (6)
  - Alopecia [Unknown]
  - Dry skin [Unknown]
  - Hair texture abnormal [Unknown]
  - Pruritus [Unknown]
  - Hair growth abnormal [Unknown]
  - Skin exfoliation [Unknown]
